FAERS Safety Report 4269089-7 (Version None)
Quarter: 2004Q1

REPORT INFORMATION
  Report Type: 
  Country: None (occurrence: None)
  Receive Date: 20040109
  Receipt Date: 20031222
  Transmission Date: 20041129
  Serious: Yes (Hospitalization)
  Sender: FDA-Public Use
  Company Number: ATO-03-0846

PATIENT
  Age: 38 Year
  Sex: Female
  Weight: 70.5 kg

DRUGS (5)
  1. TRISENOX [Suspect]
     Indication: ACUTE PROMYELOCYTIC LEUKAEMIA
     Dosage: 143 MG (0.15 MG/KG, 5X/WK FOR 5 WKS), IVI
     Route: 042
     Dates: start: 20030924, end: 20031126
  2. METHADONE HCL [Concomitant]
  3. COMPAZINE [Concomitant]
  4. MAGNESIUM [Concomitant]
  5. POTASSIUM [Concomitant]

REACTIONS (5)
  - CATHETER RELATED INFECTION [None]
  - FLANK PAIN [None]
  - NEUTROPENIA [None]
  - PANCREATITIS [None]
  - STAPHYLOCOCCAL INFECTION [None]
